FAERS Safety Report 15921244 (Version 5)
Quarter: 2020Q3

REPORT INFORMATION
  Report Type: Spontaneous
  Country: TH (occurrence: TH)
  Receive Date: 20190205
  Receipt Date: 20200910
  Transmission Date: 20201102
  Serious: Yes (Death, Other)
  Sender: FDA-Public Use
  Company Number: PHHY2019TH022968

PATIENT
  Age: 67 Year
  Sex: Male

DRUGS (5)
  1. FENTANYL TRANSDERMAL SYSTEM [Concomitant]
     Active Substance: FENTANYL
     Indication: BONE PAIN
     Dosage: UNK
     Route: 065
  2. MIRACID [Concomitant]
     Indication: PROPHYLAXIS
     Dosage: UNK
     Route: 065
  3. MEKINIST [Suspect]
     Active Substance: TRAMETINIB DIMETHYL SULFOXIDE
     Indication: MALIGNANT MELANOMA
     Dosage: 2 MG, QD
     Route: 065
  4. ATIVAN [Concomitant]
     Active Substance: LORAZEPAM
     Indication: INSOMNIA
     Dosage: UNK
     Route: 065
  5. TAFINLAR [Suspect]
     Active Substance: DABRAFENIB MESYLATE
     Indication: MALIGNANT MELANOMA
     Dosage: 100 MG, BID
     Route: 065

REACTIONS (15)
  - Pulmonary embolism [Unknown]
  - Fatigue [Unknown]
  - Dry skin [Unknown]
  - Malignant neoplasm progression [Fatal]
  - Deep vein thrombosis [Unknown]
  - Decreased appetite [Unknown]
  - Aspartate aminotransferase increased [Unknown]
  - Back pain [Unknown]
  - Malignant melanoma [Fatal]
  - Pyrexia [Unknown]
  - Blood creatinine increased [Unknown]
  - Metastases to bone [Unknown]
  - Anaemia [Unknown]
  - Haematocrit decreased [Unknown]
  - Ejection fraction decreased [Unknown]
